FAERS Safety Report 4567257-8 (Version None)
Quarter: 2005Q1

REPORT INFORMATION
  Report Type: 
  Country: None (occurrence: None)
  Receive Date: 20050201
  Receipt Date: 20041029
  Transmission Date: 20050727
  Serious: Yes (Other)
  Sender: FDA-Public Use
  Company Number: GBWYE174204NOV04

PATIENT
  Sex: Female
  Weight: 53.8 kg

DRUGS (3)
  1. ENBREL [Suspect]
     Indication: JUVENILE ARTHRITIS
     Route: 058
     Dates: start: 20030602, end: 20031201
  2. FELDENE [Concomitant]
     Indication: ARTHRITIS
     Route: 048
     Dates: start: 20030301
  3. METHOTREXATE [Concomitant]
     Dates: start: 19980101, end: 20030602

REACTIONS (11)
  - INJECTION SITE ERYTHEMA [None]
  - INJECTION SITE HAEMORRHAGE [None]
  - INJECTION SITE INDURATION [None]
  - INJECTION SITE PRURITUS [None]
  - INJECTION SITE RASH [None]
  - INJECTION SITE REACTION [None]
  - INJECTION SITE SWELLING [None]
  - MENOMETRORRHAGIA [None]
  - MENORRHAGIA [None]
  - MENSTRUATION IRREGULAR [None]
  - MOOD SWINGS [None]
